FAERS Safety Report 25711901 (Version 1)
Quarter: 2025Q3

REPORT INFORMATION
  Report Type: Report from Study
  Country: US (occurrence: US)
  Receive Date: 20250821
  Receipt Date: 20250821
  Transmission Date: 20251020
  Serious: Yes (Hospitalization)
  Sender: JOHNSON AND JOHNSON
  Company Number: US-JNJFOC-20250737249

PATIENT
  Age: 70 Year
  Sex: Male
  Weight: 75 kg

DRUGS (7)
  1. TOLODODEKIN ALFA [Suspect]
     Active Substance: TOLODODEKIN ALFA
     Indication: Plasma cell myeloma
     Route: 058
     Dates: start: 20230301, end: 20230428
  2. TOLODODEKIN ALFA [Suspect]
     Active Substance: TOLODODEKIN ALFA
     Route: 058
     Dates: start: 20230428, end: 20240901
  3. TOLODODEKIN ALFA [Suspect]
     Active Substance: TOLODODEKIN ALFA
     Route: 058
     Dates: start: 20230901, end: 20230901
  4. ELRANATAMAB [Suspect]
     Active Substance: ELRANATAMAB
     Indication: Plasma cell myeloma
     Dates: start: 20230217, end: 20230217
  5. ELRANATAMAB [Suspect]
     Active Substance: ELRANATAMAB
     Dates: start: 20230222, end: 20230804
  6. ELRANATAMAB [Suspect]
     Active Substance: ELRANATAMAB
     Dates: start: 20230804, end: 20230901
  7. ELRANATAMAB [Suspect]
     Active Substance: ELRANATAMAB
     Dates: start: 20230214, end: 20230214

REACTIONS (2)
  - Cytomegalovirus chorioretinitis [Recovered/Resolved]
  - Cytomegalovirus infection reactivation [Recovered/Resolved]

NARRATIVE: CASE EVENT DATE: 20230828
